FAERS Safety Report 7634169-2 (Version None)
Quarter: 2011Q3

REPORT INFORMATION
  Report Type: 
  Country: None (occurrence: None)
  Receive Date: 20110725
  Receipt Date: 20110714
  Transmission Date: 20111222
  Serious: Yes (Other)
  Sender: FDA-Public Use
  Company Number: HR-ASTRAZENECA-2011SE42388

PATIENT
  Sex: Male

DRUGS (5)
  1. AGGRENOX [Suspect]
     Dosage: 200/25 MG
     Dates: start: 20100101
  2. CRESTOR [Suspect]
     Indication: HYPERCHOLESTEROLAEMIA
     Route: 048
     Dates: start: 20100101
  3. PREXANIL COMBI [Suspect]
     Route: 048
  4. CRESTOR [Suspect]
     Route: 048
  5. PREXANIL COMBI [Suspect]
     Indication: HYPERTENSION
     Route: 048
     Dates: start: 20101201

REACTIONS (3)
  - MYALGIA [None]
  - DIZZINESS [None]
  - GAIT DISTURBANCE [None]
